FAERS Safety Report 9293046 (Version 1)
Quarter: 2013Q2

REPORT INFORMATION
  Report Type: Spontaneous
  Country: US (occurrence: None)
  Receive Date: 20130515
  Receipt Date: 20130515
  Transmission Date: 20140414
  Serious: Yes (Other)
  Sender: FDA-Public Use
  Company Number: None

PATIENT
  Age: 33 Year
  Sex: Female
  Weight: 147.42 kg

DRUGS (1)
  1. LUPRON DEPOT [Suspect]
     Indication: ENDOMETRIOSIS
     Dates: start: 20130311, end: 20130514

REACTIONS (5)
  - Migraine [None]
  - Mood swings [None]
  - Arthralgia [None]
  - Gait disturbance [None]
  - Activities of daily living impaired [None]
